FAERS Safety Report 7414897-4 (Version None)
Quarter: 2011Q2

REPORT INFORMATION
  Report Type: 
  Country: None (occurrence: None)
  Receive Date: 20110414
  Receipt Date: 20110407
  Transmission Date: 20111010
  Serious: Yes (Hospitalization)
  Sender: FDA-Public Use
  Company Number: CA-GENZYME-CERZ-1001952

PATIENT
  Sex: Female
  Weight: 75.5 kg

DRUGS (4)
  1. CEREZYME [Suspect]
     Dosage: 21 U/KG, Q2W
     Route: 042
     Dates: start: 20010709
  2. LEVOTHYROXINE [Concomitant]
     Indication: HYPOTHYROIDISM
     Dosage: 0.125 MG, QD
  3. MONOCOR [Concomitant]
     Indication: PRODUCT USED FOR UNKNOWN INDICATION
     Dosage: 5 MG, QD
     Route: 048
  4. CEREZYME [Suspect]
     Indication: GAUCHER'S DISEASE
     Dosage: 16 U/KG, Q2W
     Route: 042
     Dates: start: 20010709

REACTIONS (3)
  - DEEP VEIN THROMBOSIS [None]
  - HAEMORRHAGIC STROKE [None]
  - ENDOCARDITIS [None]
